FAERS Safety Report 16683803 (Version 1)
Quarter: 2019Q3

REPORT INFORMATION
  Report Type: Report from Study
  Country: FR (occurrence: FR)
  Receive Date: 20190808
  Receipt Date: 20190808
  Transmission Date: 20191004
  Serious: Yes (Hospitalization, Other)
  Sender: FDA-Public Use
  Company Number: FR-MYLANLABS-2019M1073613

PATIENT
  Age: 40 Year
  Sex: Male
  Weight: 82 kg

DRUGS (7)
  1. BRENTUXIMAB VEDOTIN [Suspect]
     Active Substance: BRENTUXIMAB VEDOTIN
     Indication: HODGKIN^S DISEASE
     Dosage: 150 MILLIGRAM
     Route: 042
     Dates: start: 20181018
  2. BRENTUXIMAB VEDOTIN [Suspect]
     Active Substance: BRENTUXIMAB VEDOTIN
     Dosage: 98 MILLIGRAM
     Route: 042
     Dates: start: 20170324
  3. IFOSFAMIDE. [Suspect]
     Active Substance: IFOSFAMIDE
     Indication: HODGKIN^S DISEASE
     Dosage: 9800 MILLIGRAM
     Route: 042
     Dates: start: 20170324, end: 20170525
  4. ETOPOSIDE. [Suspect]
     Active Substance: ETOPOSIDE
     Indication: HODGKIN^S DISEASE
     Dosage: 195 MG, UNK
     Route: 042
     Dates: start: 20170324, end: 20170526
  5. BRENTUXIMAB VEDOTIN [Suspect]
     Active Substance: BRENTUXIMAB VEDOTIN
     Dosage: 100 MILLIGRAM
     Route: 042
     Dates: start: 20170524
  6. BRENTUXIMAB VEDOTIN [Suspect]
     Active Substance: BRENTUXIMAB VEDOTIN
     Dosage: 140 MILLIGRAM
     Route: 042
     Dates: start: 20171115
  7. CARBOPLATIN. [Suspect]
     Active Substance: CARBOPLATIN
     Indication: HODGKIN^S DISEASE
     Dosage: 545 MG, UNK
     Route: 042
     Dates: start: 20170324, end: 20170525

REACTIONS (5)
  - Septic shock [Recovered/Resolved]
  - Muscle spasms [Unknown]
  - Off label use [Unknown]
  - Arthralgia [Unknown]
  - Adverse event [Unknown]

NARRATIVE: CASE EVENT DATE: 20170324
